FAERS Safety Report 18199979 (Version 1)
Quarter: 2020Q3

REPORT INFORMATION
  Report Type: Spontaneous
  Country: US (occurrence: US)
  Receive Date: 20200826
  Receipt Date: 20200826
  Transmission Date: 20201103
  Serious: Yes (Other)
  Sender: FDA-Public Use
  Company Number: US-PURDUE-USA-2020-0162788

PATIENT
  Sex: Male

DRUGS (2)
  1. OXYCODONE HCL CR TABLETS (SIMILAR TO NDA 22?272) [Suspect]
     Active Substance: OXYCODONE HYDROCHLORIDE
     Indication: PRODUCT USED FOR UNKNOWN INDICATION
     Dosage: UNK
     Route: 048
  2. OXYCODONE HCL TABLETS (RHODES 91?490) [Suspect]
     Active Substance: OXYCODONE HYDROCHLORIDE
     Indication: PRODUCT USED FOR UNKNOWN INDICATION
     Dosage: UNK
     Route: 048

REACTIONS (25)
  - Drug dependence [Unknown]
  - Body temperature increased [Unknown]
  - Hot flush [Unknown]
  - Memory impairment [Unknown]
  - Depression [Unknown]
  - Nausea [Unknown]
  - Piloerection [Unknown]
  - Constipation [Unknown]
  - Pancreatitis [Unknown]
  - Hyperhidrosis [Unknown]
  - Myalgia [Unknown]
  - Nervousness [Unknown]
  - Gastrointestinal motility disorder [Unknown]
  - Learning disability [Unknown]
  - Diarrhoea [Unknown]
  - Cough [Unknown]
  - Rhinorrhoea [Unknown]
  - Abdominal pain [Unknown]
  - Disorientation [Unknown]
  - Gastrointestinal disorder [Unknown]
  - Anxiety [Unknown]
  - Confusional state [Unknown]
  - Mood altered [Unknown]
  - Muscle twitching [Unknown]
  - Cognitive disorder [Unknown]
